FAERS Safety Report 23296282 (Version 1)
Quarter: 2023Q4

REPORT INFORMATION
  Report Type: Spontaneous
  Country: US (occurrence: None)
  Receive Date: 20231213
  Receipt Date: 20231213
  Transmission Date: 20240109
  Serious: Yes (Other)
  Sender: FDA-Public Use
  Company Number: None

PATIENT
  Sex: Female
  Weight: 56.7 kg

DRUGS (4)
  1. ROSUVASTATIN [Suspect]
     Active Substance: ROSUVASTATIN
     Indication: Blood cholesterol increased
     Dosage: 1 TABLET ONCE DEILY BY MOUTH
     Route: 048
     Dates: start: 20230930, end: 20231030
  2. SYNTHROID [Concomitant]
     Active Substance: LEVOTHYROXINE SODIUM
  3. DETROL [Concomitant]
  4. Womans multivitamin [Concomitant]

REACTIONS (7)
  - Flushing [None]
  - Ear pain [None]
  - Confusional state [None]
  - Amnesia [None]
  - Headache [None]
  - Urine output increased [None]
  - Feeling hot [None]
